FAERS Safety Report 4681850-3 (Version None)
Quarter: 2005Q2

REPORT INFORMATION
  Report Type: 
  Country: None (occurrence: None)
  Receive Date: 20050602
  Receipt Date: 20050520
  Transmission Date: 20051028
  Serious: Yes (Other)
  Sender: FDA-Public Use
  Company Number: 2005074535

PATIENT
  Age: 43 Year
  Sex: Male

DRUGS (12)
  1. BEXTRA [Suspect]
     Indication: POSTOPERATIVE CARE
     Dosage: 40 MG (40 MG 1 IN 1 D) ORAL
     Route: 048
     Dates: start: 20050320, end: 20050301
  2. TYLENOL [Concomitant]
  3. ALBUMIN (HUMAN) [Concomitant]
  4. KANAKION (PHYTOMENADIONE) [Concomitant]
  5. PANTOPRAZOLE SODIUM [Concomitant]
  6. BENERVA (THIAMINE HYDROCHLORIDE) [Concomitant]
  7. LACTULOSE [Concomitant]
  8. ALDACTONE [Concomitant]
  9. FOLIC ACID [Concomitant]
  10. ENALAPRIL MALEATE [Concomitant]
  11. DIGOXIN [Concomitant]
  12. LASIX [Concomitant]

REACTIONS (6)
  - ABDOMINAL DISTENSION [None]
  - GASTRIC ULCER [None]
  - GASTRITIS [None]
  - HEPATITIS [None]
  - PARALYSIS [None]
  - RENAL DISORDER [None]
